FAERS Safety Report 9789897 (Version 2)
Quarter: 2014Q1

REPORT INFORMATION
  Report Type: Spontaneous
  Country: JP (occurrence: JP)
  Receive Date: 20131231
  Receipt Date: 20140205
  Transmission Date: 20141002
  Serious: Yes (Death)
  Sender: FDA-Public Use
  Company Number: JP-JNJFOC-20131215591

PATIENT
  Age: 55 Year
  Sex: Male

DRUGS (5)
  1. XARELTO [Suspect]
     Indication: ATRIAL FIBRILLATION
     Route: 048
     Dates: start: 20130219, end: 20131210
  2. XARELTO [Suspect]
     Indication: CEREBROVASCULAR ACCIDENT PROPHYLAXIS
     Route: 048
     Dates: start: 20130219, end: 20131210
  3. NORVASC [Concomitant]
     Route: 048
     Dates: start: 20040821, end: 20131210
  4. DIOVAN [Concomitant]
     Route: 048
     Dates: start: 20040821, end: 20131210
  5. ALLORIN [Concomitant]
     Route: 048
     Dates: start: 20041005, end: 20131210

REACTIONS (1)
  - Acute myocardial infarction [Fatal]
